FAERS Safety Report 9548400 (Version 1)
Quarter: 2013Q3

REPORT INFORMATION
  Report Type: Spontaneous
  Country: TR (occurrence: None)
  Receive Date: 20130711
  Receipt Date: 20130711
  Transmission Date: 20140515
  Serious: Yes (Other)
  Sender: FDA-Public Use
  Company Number: 2013-01277

PATIENT
  Age: 70 Year
  Sex: Female

DRUGS (1)
  1. LEVETIRACETAM (UNKNOWN) (LEVETIRACETAM) [Suspect]
     Indication: CONVULSION

REACTIONS (1)
  - Pemphigoid [None]
